FAERS Safety Report 8326628-4 (Version None)
Quarter: 2012Q2

REPORT INFORMATION
  Report Type: 
  Country: None (occurrence: None)
  Receive Date: 20120501
  Receipt Date: 20110720
  Transmission Date: 20120825
  Serious: No
  Sender: FDA-Public Use
  Company Number: US-SANOFI-AVENTIS-2011SA047545

PATIENT
  Age: 55 Year
  Sex: Female
  Weight: 82 kg

DRUGS (6)
  1. NAPROXEN [Concomitant]
  2. SIMVASTATIN [Concomitant]
  3. LOSARTAN POTASSIUM [Concomitant]
  4. APIDRA [Suspect]
     Route: 058
     Dates: start: 20110531, end: 20110701
  5. LANTUS [Concomitant]
     Dosage: DOSE:190 UNIT(S)
     Route: 058
  6. METFORMIN HCL [Concomitant]
     Dosage: TAKE 2 IN THE MORNING AND ONE AT SUPPER TIME

REACTIONS (5)
  - FALL [None]
  - HEART RATE INCREASED [None]
  - HEADACHE [None]
  - DYSPNOEA [None]
  - DIZZINESS [None]
